FAERS Safety Report 22202284 (Version 2)
Quarter: 2023Q4

REPORT INFORMATION
  Report Type: Spontaneous
  Country: CN (occurrence: CN)
  Receive Date: 20230412
  Receipt Date: 20231006
  Transmission Date: 20240110
  Serious: Yes (Life-Threatening)
  Sender: FDA-Public Use
  Company Number: CN-BAYER-2023A048323

PATIENT
  Age: 38 Year
  Sex: Female

DRUGS (1)
  1. ULTRAVIST [Suspect]
     Active Substance: IOPROMIDE
     Indication: Computerised tomogram abdomen
     Dosage: 100.8 ML, ONCE
     Route: 042
     Dates: start: 20230406, end: 20230406

REACTIONS (3)
  - Contrast media allergy [Recovering/Resolving]
  - Rash pruritic [None]
  - Hypoaesthesia [None]

NARRATIVE: CASE EVENT DATE: 20230406
